FAERS Safety Report 11258130 (Version 1)
Quarter: 2015Q2

REPORT INFORMATION
  Report Type: Spontaneous
  Country: US (occurrence: None)
  Receive Date: 20150617
  Receipt Date: 20150617
  Transmission Date: 20150821
  Serious: No
  Sender: FDA-Public Use
  Company Number: 2014TASUS000658

PATIENT
  Age: 40 Year
  Sex: Male
  Weight: 110.7 kg

DRUGS (14)
  1. BUPROPION HCL ER (BUPROPION HYDROCHLORIDE) [Concomitant]
  2. ZOCOR [Concomitant]
     Active Substance: SIMVASTATIN
  3. BACITRACIN ZINC. [Concomitant]
     Active Substance: BACITRACIN ZINC
  4. MECLIZINE [Concomitant]
     Active Substance: MECLIZINE\MECLIZINE HYDROCHLORIDE
  5. LASIX (FUROSEMDIE) [Concomitant]
  6. COZAAR [Concomitant]
     Active Substance: LOSARTAN POTASSIUM
  7. LANTUS [Concomitant]
     Active Substance: INSULIN GLARGINE
  8. VITAMIN D (COLECALCIFEROL) [Concomitant]
  9. FLOMAX [Concomitant]
     Active Substance: TAMSULOSIN HYDROCHLORIDE
  10. ASPIRIN. [Concomitant]
     Active Substance: ASPIRIN
  11. HETLIOZ [Suspect]
     Active Substance: TASIMELTEON
     Indication: CIRCADIAN RHYTHM SLEEP DISORDER
     Route: 048
     Dates: start: 20141216
  12. COREG [Concomitant]
     Active Substance: CARVEDILOL
  13. HUMALOG [Concomitant]
     Active Substance: INSULIN LISPRO
  14. METOLAZONE. [Concomitant]
     Active Substance: METOLAZONE

REACTIONS (1)
  - Chest discomfort [None]
